FAERS Safety Report 17257576 (Version 4)
Quarter: 2020Q4

REPORT INFORMATION
  Report Type: Spontaneous
  Country: US (occurrence: US)
  Receive Date: 20200110
  Receipt Date: 20201103
  Transmission Date: 20210113
  Serious: No
  Sender: FDA-Public Use
  Company Number: US-PFIZER INC-2020012222

PATIENT
  Age: 65 Year
  Sex: Female
  Weight: 70.31 kg

DRUGS (1)
  1. CHANTIX [Suspect]
     Active Substance: VARENICLINE TARTRATE
     Indication: SMOKING CESSATION THERAPY
     Dosage: UNK (3 TIMES 1 1/2 OVAL TABLETS BY MOUTH A DAY)
     Route: 048
     Dates: start: 2018

REACTIONS (5)
  - Fall [Unknown]
  - Abdominal pain upper [Unknown]
  - Product prescribing error [Unknown]
  - Nausea [Unknown]
  - Dyspepsia [Unknown]
